FAERS Safety Report 21695772 (Version 2)
Quarter: 2023Q1

REPORT INFORMATION
  Report Type: Report from Study
  Country: US (occurrence: US)
  Receive Date: 20221207
  Receipt Date: 20230214
  Transmission Date: 20230417
  Serious: Yes (Hospitalization, Other)
  Sender: FDA-Public Use
  Company Number: US-ABBVIE-4226655

PATIENT
  Age: 58 Year
  Sex: Female

DRUGS (3)
  1. SKYRIZI [Suspect]
     Active Substance: RISANKIZUMAB-RZAA
     Indication: Psoriasis
     Dosage: WEEK 0?150MG/ML
     Route: 058
     Dates: start: 20220910, end: 20220910
  2. SKYRIZI [Suspect]
     Active Substance: RISANKIZUMAB-RZAA
     Dosage: WEEK 12?150MG/ML
     Route: 058
     Dates: start: 20230102
  3. SKYRIZI [Suspect]
     Active Substance: RISANKIZUMAB-RZAA
     Dosage: WEEK 4?150MG/ML
     Route: 058
     Dates: start: 20221010, end: 20221010

REACTIONS (4)
  - Bell^s palsy [Recovering/Resolving]
  - Injection site erythema [Unknown]
  - Sinusitis [Unknown]
  - Face oedema [Unknown]

NARRATIVE: CASE EVENT DATE: 20221125
